FAERS Safety Report 7338152-6 (Version None)
Quarter: 2011Q1

REPORT INFORMATION
  Report Type: 
  Country: None (occurrence: None)
  Receive Date: 20110308
  Receipt Date: 20110223
  Transmission Date: 20110831
  Serious: Yes (Hospitalization, Other)
  Sender: FDA-Public Use
  Company Number: FR-ELI_LILLY_AND_COMPANY-FR201103000850

PATIENT
  Sex: Male

DRUGS (3)
  1. XANAX [Concomitant]
     Indication: ANXIETY
     Dates: start: 20070414, end: 20091104
  2. RIVOTRIL [Concomitant]
     Indication: ANXIETY
     Dates: start: 20070224, end: 20091021
  3. CYMBALTA [Suspect]
     Indication: NEURALGIA
     Dosage: 60 MG, DAILY (1/D)
     Route: 048
     Dates: start: 20090510, end: 20091021

REACTIONS (6)
  - CARDIOMYOPATHY [None]
  - BRONCHITIS [None]
  - LEUKOCYTOSIS [None]
  - RENAL FAILURE [None]
  - CARDIAC FAILURE CONGESTIVE [None]
  - HYPERKALAEMIA [None]
